FAERS Safety Report 14978976 (Version 2)
Quarter: 2018Q2

REPORT INFORMATION
  Report Type: Report from Study
  Country: CA (occurrence: CA)
  Receive Date: 20180606
  Receipt Date: 20180622
  Transmission Date: 20180711
  Serious: Yes (Death, Hospitalization)
  Sender: FDA-Public Use
  Company Number: CA-TAIHO ONCOLOGY INC-EU-2018-00713

PATIENT
  Age: 80 Year
  Sex: Female

DRUGS (1)
  1. LONSURF [Suspect]
     Active Substance: TIPIRACIL HYDROCHLORIDE\TRIFLURIDINE
     Indication: COLORECTAL CANCER METASTATIC
     Dosage: CYCLE 3 STARTED ON 12 MAY 2018
     Route: 048
     Dates: start: 20180306, end: 20180521

REACTIONS (9)
  - Abdominal pain upper [Not Recovered/Not Resolved]
  - Constipation [Unknown]
  - Blood potassium decreased [Unknown]
  - Neutropenia [Unknown]
  - Wound evisceration [Fatal]
  - Disease progression [Unknown]
  - Vertigo [Not Recovered/Not Resolved]
  - Pruritus generalised [Unknown]
  - Blood alkaline phosphatase increased [Unknown]

NARRATIVE: CASE EVENT DATE: 2018
